FAERS Safety Report 8111290 (Version 4)
Quarter: 2014Q3

REPORT INFORMATION
  Report Type: Spontaneous
  Country: US (occurrence: US)
  Receive Date: 20110829
  Receipt Date: 20140716
  Transmission Date: 20150326
  Serious: Yes (Death, Hospitalization)
  Sender: FDA-Public Use
  Company Number: US-GLAXOSMITHKLINE-A0888758A

PATIENT
  Sex: Male
  Weight: 86.4 kg

DRUGS (2)
  1. AVANDIA [Suspect]
     Active Substance: ROSIGLITAZONE MALEATE
     Indication: DIABETES MELLITUS
     Dosage: 4MG PER DAY
     Route: 048
     Dates: start: 2006, end: 200802
  2. AVANDAMET [Suspect]
     Active Substance: METFORMIN HYDROCHLORIDE\ROSIGLITAZONE MALEATE
     Indication: DIABETES MELLITUS
     Route: 048
     Dates: start: 200506, end: 200802

REACTIONS (6)
  - Cerebrovascular disorder [Unknown]
  - Transient ischaemic attack [Unknown]
  - Myocardial infarction [Unknown]
  - Coronary artery disease [Unknown]
  - Cardiac disorder [Fatal]
  - Cerebrovascular accident [Unknown]
